FAERS Safety Report 12625160 (Version 9)
Quarter: 2018Q3

REPORT INFORMATION
  Report Type: Report from Study
  Country: CZ (occurrence: CZ)
  Receive Date: 20160805
  Receipt Date: 20180817
  Transmission Date: 20181010
  Serious: Yes (Life-Threatening, Hospitalization)
  Sender: FDA-Public Use
  Company Number: CZ-ROCHE-1804888

PATIENT
  Age: 75 Year
  Sex: Female
  Weight: 66 kg

DRUGS (31)
  1. CYCLOPHOSPHAMIDE. [Suspect]
     Active Substance: CYCLOPHOSPHAMIDE
     Indication: B-CELL LYMPHOMA
     Dosage: DATE OF LAST DOSE (1275 UNIT NOT REPORTED) PRIOR TO EVENT: 18/JUL/2016?ROUTE AND STARTING DOSE AS PE
     Route: 042
     Dates: start: 20160509
  2. METOCLOPRAMIDE. [Concomitant]
     Active Substance: METOCLOPRAMIDE
     Route: 065
     Dates: start: 20160627, end: 20160701
  3. EUTHYROX [Concomitant]
     Active Substance: LEVOTHYROXINE SODIUM
     Indication: HYPOTHYROIDISM
     Route: 065
     Dates: start: 2010
  4. OXAZEPAM. [Concomitant]
     Active Substance: OXAZEPAM
     Indication: INSOMNIA
     Route: 065
  5. ONDANSETRON [Concomitant]
     Active Substance: ONDANSETRON
     Route: 065
     Dates: start: 20160718, end: 20160718
  6. BISEPTOL [Concomitant]
     Active Substance: SULFAMETHOXAZOLE\TRIMETHOPRIM
     Indication: ANTIFUNGAL PROPHYLAXIS
     Route: 065
     Dates: start: 20160627, end: 20160919
  7. PARACETAMOL [Concomitant]
     Active Substance: ACETAMINOPHEN
     Indication: HEADACHE
     Route: 065
  8. ENDIARON [Concomitant]
     Indication: DIARRHOEA
     Route: 065
     Dates: start: 20160707, end: 20160711
  9. CODEIN [Concomitant]
     Active Substance: CODEINE
     Route: 065
     Dates: start: 20160727, end: 20160810
  10. RED BLOOD CELLS [Concomitant]
     Active Substance: HUMAN RED BLOOD CELL
     Route: 065
     Dates: start: 20160728, end: 20160728
  11. HELICID [Concomitant]
     Active Substance: OMEPRAZOLE
     Route: 065
     Dates: start: 20160718, end: 20160721
  12. RITUXIMAB. [Suspect]
     Active Substance: RITUXIMAB
     Indication: B-CELL LYMPHOMA
     Dosage: DATE OF LAST DOSE (637.5 MG) PRIOR TO EVENT: 18/JUL/2016?STARTING DOSE TAKEN FROM STUDY PROTOCOL
     Route: 042
     Dates: start: 20160509
  13. TONARSSA [Concomitant]
     Route: 065
     Dates: start: 201611
  14. TANTUM VERDE [Concomitant]
     Active Substance: BENZYDAMINE HYDROCHLORIDE
     Indication: DENTAL DISORDER PROPHYLAXIS
     Route: 065
     Dates: start: 20160608
  15. VENETOCLAX. [Suspect]
     Active Substance: VENETOCLAX
     Indication: B-CELL LYMPHOMA
     Dosage: DATE OF LAST DOSE PRIOR TO EVENT: 22/JUL/2016 (800 MG)
     Route: 048
     Dates: start: 20160512
  16. PREDNISONE. [Suspect]
     Active Substance: PREDNISONE
     Indication: B-CELL LYMPHOMA
     Dosage: DATE OF LAST DOSE (100 OTHER) PRIOR TO EVENT: 22/JUL/2016?ROUTE AND STARTING DOSE AS PER STUDY PROTO
     Route: 048
     Dates: start: 20160509
  17. CODEIN [Concomitant]
     Active Substance: CODEINE
     Indication: COUGH
     Route: 065
     Dates: start: 20160707, end: 20160717
  18. ONDANSETRON [Concomitant]
     Active Substance: ONDANSETRON
     Route: 065
     Dates: start: 20160627, end: 20160627
  19. CEFEPIME [Concomitant]
     Active Substance: CEFEPIME HYDROCHLORIDE
     Indication: FEBRILE NEUTROPENIA
     Route: 065
     Dates: start: 20160727, end: 20160803
  20. AMBROXOL [Concomitant]
     Active Substance: AMBROXOL
     Route: 065
     Dates: start: 20160801, end: 20160804
  21. ACC LONG [Concomitant]
     Active Substance: ACETYLCYSTEINE
     Route: 065
     Dates: start: 20160608, end: 20160829
  22. METOCLOPRAMIDE. [Concomitant]
     Active Substance: METOCLOPRAMIDE
     Route: 065
     Dates: start: 20160718, end: 20160722
  23. HERPESIN [Concomitant]
     Active Substance: ACYCLOVIR
     Indication: PROPHYLAXIS
     Route: 065
     Dates: start: 20160526, end: 20160804
  24. RED BLOOD CELLS [Concomitant]
     Active Substance: HUMAN RED BLOOD CELL
     Indication: ANAEMIA
     Route: 065
     Dates: start: 20160727, end: 20160727
  25. HELICID [Concomitant]
     Active Substance: OMEPRAZOLE
     Route: 065
     Dates: start: 20160627, end: 20160701
  26. DOXORUBICIN [Suspect]
     Active Substance: DOXORUBICIN
     Indication: B-CELL LYMPHOMA
     Dosage: DATE OF LAST DOSE (85 UNIT NOT REPORTED) PRIOR TO EVENT: 18/JUL/2016?ROUTE AND STARTING DOSE AS PER
     Route: 042
     Dates: start: 20160509
  27. ACC LONG [Concomitant]
     Active Substance: ACETYLCYSTEINE
     Indication: BRONCHITIS
     Route: 065
     Dates: start: 20160728, end: 20160819
  28. BISEPTOL [Concomitant]
     Active Substance: SULFAMETHOXAZOLE\TRIMETHOPRIM
     Indication: BRONCHITIS
     Route: 065
     Dates: start: 20160623, end: 20160626
  29. VINCRISTINE [Suspect]
     Active Substance: VINCRISTINE
     Indication: B-CELL LYMPHOMA
     Dosage: DATE OF LAST DOSE PRIOR TO EVENT: 18/JUL/2016?ROUTE AND STARTING DOSE AS PER STUDY PROTOCOL
     Route: 042
     Dates: start: 20160509
  30. TONARSSA [Concomitant]
     Indication: HYPERTENSION
     Dosage: 2/5 MG
     Route: 065
     Dates: start: 20160516, end: 20160919
  31. FLUCONAZOL [Concomitant]
     Active Substance: FLUCONAZOLE
     Indication: PROPHYLAXIS
     Route: 065
     Dates: start: 20160727, end: 20160804

REACTIONS (1)
  - Bronchitis [Recovered/Resolved with Sequelae]

NARRATIVE: CASE EVENT DATE: 20160725
